FAERS Safety Report 4366871-2 (Version None)
Quarter: 2004Q2

REPORT INFORMATION
  Report Type: 
  Country: None (occurrence: None)
  Receive Date: 20040524
  Receipt Date: 20040512
  Transmission Date: 20050107
  Serious: No
  Sender: FDA-Public Use
  Company Number: 04P-008-0254878-00

PATIENT
  Age: 64 Year
  Sex: Female

DRUGS (4)
  1. ISOPTIN [Suspect]
     Indication: MYOCARDIAL INFARCTION
     Dosage: 240 MG, 1 IN 1 D, ORAL
     Route: 048
     Dates: end: 20030820
  2. DICLOFENAC SODIUM [Suspect]
     Indication: MYOCARDIAL INFARCTION
     Dosage: 50 MG, 1 IN 1 D, PER ORAL
     Route: 048
     Dates: end: 20030820
  3. METHYLDOPA [Suspect]
     Indication: MYOCARDIAL INFARCTION
     Dosage: 250 MCG, 1 IN 1 D, OCCLUSIVE
     Route: 046
     Dates: end: 20030819
  4. INDAPAMIDE [Suspect]
     Indication: MYOCARDIAL INFARCTION
     Dosage: 2.5 MG, 1 IN 1 D, ORAL
     Route: 048
     Dates: end: 20030820

REACTIONS (1)
  - HYPOKALAEMIA [None]
